FAERS Safety Report 9940960 (Version 3)
Quarter: 2014Q3

REPORT INFORMATION
  Report Type: Spontaneous
  Country: IT (occurrence: IT)
  Receive Date: 20140303
  Receipt Date: 20140718
  Transmission Date: 20150326
  Serious: Yes (Hospitalization)
  Sender: FDA-Public Use
  Company Number: IT-BRISTOL-MYERS SQUIBB COMPANY-20297388

PATIENT
  Age: 86 Year
  Sex: Female

DRUGS (9)
  1. REPAGLINIDE. [Concomitant]
     Active Substance: REPAGLINIDE
     Route: 048
  2. CLASTEON [Concomitant]
     Dosage: 1DF=100MG/3.3ML INJECTION SOLUTION
  3. TAVOR [Concomitant]
     Active Substance: LORAZEPAM
     Dosage: 2.5 MG TABS?1DF=.5 UNIT
  4. COUMADIN [Suspect]
     Active Substance: WARFARIN SODIUM
     Indication: ATRIAL FIBRILLATION
     Route: 048
     Dates: start: 20130301, end: 20130814
  5. LASIX [Suspect]
     Active Substance: FUROSEMIDE
     Indication: HYPERTENSION
     Dosage: TABS
     Route: 048
     Dates: start: 20130101, end: 20130814
  6. KANRENOL [Concomitant]
     Active Substance: CANRENOATE POTASSIUM
     Dosage: 100 MG TABS
     Route: 048
  7. XERISTAR [Concomitant]
     Active Substance: DULOXETINE HYDROCHLORIDE
     Dosage: CAPS
  8. OLMETEC [Concomitant]
     Active Substance: OLMESARTAN MEDOXOMIL
     Dosage: TABS
  9. NORMIX [Concomitant]
     Active Substance: RIFAXIMIN
     Dosage: TABS

REACTIONS (7)
  - Lethargy [Recovering/Resolving]
  - Urinary tract infection [Recovering/Resolving]
  - Confusional state [Recovering/Resolving]
  - Somnolence [Recovering/Resolving]
  - Hyponatraemia [Recovering/Resolving]
  - International normalised ratio increased [Recovering/Resolving]
  - Disorientation [Recovering/Resolving]

NARRATIVE: CASE EVENT DATE: 20130809
